FAERS Safety Report 7518445-X (Version None)
Quarter: 2011Q2

REPORT INFORMATION
  Report Type: 
  Country: None (occurrence: None)
  Receive Date: 20110602
  Receipt Date: 20110523
  Transmission Date: 20111010
  Serious: Yes (Hospitalization, Other)
  Sender: FDA-Public Use
  Company Number: FI-NAPPMUNDI-GBR-2011-0008250

PATIENT
  Sex: Female

DRUGS (6)
  1. BUPRENORPHINE [Suspect]
     Indication: PAIN
     Dosage: UNK
     Route: 062
     Dates: start: 20110131, end: 20110328
  2. WARFARIN SODIUM [Interacting]
     Indication: PRODUCT USED FOR UNKNOWN INDICATION
     Dosage: 3 MG, DAILY
     Route: 065
  3. HYDREX                             /00022001/ [Concomitant]
     Dosage: 25 MG, DAILY
  4. THYROXIN [Concomitant]
     Dosage: 25 MCG, TID
  5. COHEMIN [Concomitant]
     Dosage: 1 MG/ML, (1/3 MONTH)
  6. NORVASC [Concomitant]
     Dosage: 5 MG, DAILY

REACTIONS (2)
  - INTERNATIONAL NORMALISED RATIO INCREASED [None]
  - DRUG INTERACTION [None]
